FAERS Safety Report 25947748 (Version 1)
Quarter: 2025Q4

REPORT INFORMATION
  Report Type: Spontaneous
  Country: US (occurrence: US)
  Receive Date: 20251022
  Receipt Date: 20251022
  Transmission Date: 20260119
  Serious: Yes (Hospitalization, Other)
  Sender: BRISTOL-MYERS SQUIBB COMPANY
  Company Number: US-BRISTOL-MYERS SQUIBB COMPANY-2025-143277

PATIENT
  Age: 77 Year
  Sex: Female
  Weight: 70.76 kg

DRUGS (1)
  1. REVLIMID [Suspect]
     Active Substance: LENALIDOMIDE
     Indication: Plasma cell myeloma
     Dosage: DAILY ON DAYS 1-14 OF A 21 DAY TREATMENT CYCLE

REACTIONS (7)
  - Blood pressure abnormal [Recovering/Resolving]
  - Cerebral haemorrhage [Recovering/Resolving]
  - Cataract [Recovering/Resolving]
  - Visual impairment [Recovering/Resolving]
  - Dyspepsia [Recovering/Resolving]
  - Musculoskeletal stiffness [Recovering/Resolving]
  - Dizziness [Recovering/Resolving]

NARRATIVE: CASE EVENT DATE: 20240901
